FAERS Safety Report 16297289 (Version 1)
Quarter: 2019Q2

REPORT INFORMATION
  Report Type: Spontaneous
  Country: BR (occurrence: BR)
  Receive Date: 20190510
  Receipt Date: 20190510
  Transmission Date: 20190711
  Serious: Yes (Hospitalization)
  Sender: FDA-Public Use
  Company Number: BR-CONCORDIA PHARMACEUTICALS INC.-GSH201905-001333

PATIENT
  Age: 33 Year
  Sex: Female

DRUGS (3)
  1. PARNATE [Suspect]
     Active Substance: TRANYLCYPROMINE SULFATE
     Indication: DEPRESSION
     Route: 065
  2. PARNATE [Suspect]
     Active Substance: TRANYLCYPROMINE SULFATE
     Indication: ANXIETY
     Route: 065
  3. PARNATE [Suspect]
     Active Substance: TRANYLCYPROMINE SULFATE
     Indication: PANIC ATTACK

REACTIONS (7)
  - Neck pain [Unknown]
  - Malaise [Unknown]
  - Tremor [Unknown]
  - Blood pressure increased [Unknown]
  - Drug ineffective [Unknown]
  - Heart rate increased [Unknown]
  - Headache [Unknown]
